FAERS Safety Report 4280422-2 (Version None)
Quarter: 2004Q1

REPORT INFORMATION
  Report Type: 
  Country: None (occurrence: None)
  Receive Date: 20040122
  Receipt Date: 20040107
  Transmission Date: 20041129
  Serious: Yes (Hospitalization)
  Sender: FDA-Public Use
  Company Number: DSA_23748_2003

PATIENT
  Age: 75 Year
  Sex: Female
  Weight: 66 kg

DRUGS (9)
  1. LORAZEPAM [Suspect]
     Indication: ANXIETY DISORDER
     Dosage: 1 MG Q DAY PO
     Route: 048
     Dates: start: 19990908, end: 20031202
  2. AMLODIN [Suspect]
     Indication: HYPERTENSION
     Dosage: 5 MG Q DAY PO
     Route: 048
     Dates: start: 20000508, end: 20031202
  3. BLOPRESS [Suspect]
     Indication: HYPERTENSION
     Dosage: 4 MG Q DAY PO
     Route: 048
     Dates: start: 20030710, end: 20031202
  4. LEXOTAN [Suspect]
     Indication: ANXIETY DISORDER
     Dosage: 6 MG Q DAY PO
     Route: 048
     Dates: start: 19991006, end: 20031202
  5. PRAVASTATIN [Suspect]
     Indication: HYPERLIPIDAEMIA
     Dosage: 10 MG Q DAY PO
     Route: 048
     Dates: start: 20030803, end: 20031202
  6. TICLOPIDINE HCL [Suspect]
     Indication: CEREBRAL INFARCTION
     Dates: start: 19980112, end: 20031202
  7. TETRAMIDE [Concomitant]
  8. LENDORM [Concomitant]
  9. ALOSEN [Concomitant]

REACTIONS (4)
  - ALANINE AMINOTRANSFERASE INCREASED [None]
  - ASPARTATE AMINOTRANSFERASE INCREASED [None]
  - LIVER DISORDER [None]
  - MALAISE [None]
